FAERS Safety Report 15436492 (Version 4)
Quarter: 2018Q4

REPORT INFORMATION
  Report Type: Spontaneous
  Country: VN (occurrence: VN)
  Receive Date: 20180927
  Receipt Date: 20181009
  Transmission Date: 20190204
  Serious: Yes (Other)
  Sender: FDA-Public Use
  Company Number: PHHY2018VN099713

PATIENT
  Sex: Male

DRUGS (7)
  1. PROGRAFT [Suspect]
     Active Substance: TACROLIMUS
     Indication: PRODUCT USED FOR UNKNOWN INDICATION
     Dosage: UNK MG/KG, UNK (0.107 PLUS OR MINUS 0.01)
     Route: 065
  2. PROGRAFT [Suspect]
     Active Substance: TACROLIMUS
     Dosage: UNK MG/KG, UNK (0.108 PLUS OR MINUS 0.01)
     Route: 065
  3. CELLCEPT [Concomitant]
     Active Substance: MYCOPHENOLATE MOFETIL\MYCOPHENOLATE MOFETIL HYDROCHLORIDE
     Indication: RENAL TRANSPLANT
     Dosage: 2000 MG, QD
     Route: 065
  4. CELLCEPT [Concomitant]
     Active Substance: MYCOPHENOLATE MOFETIL\MYCOPHENOLATE MOFETIL HYDROCHLORIDE
     Dosage: UNK MG, QD (1727 PLUS OR MINUS 410)
     Route: 065
  5. NEORAL [Suspect]
     Active Substance: CYCLOSPORINE
     Indication: RENAL TRANSPLANT
     Dosage: UNK MG/KG, UNK (5.53 PLUS OR MINUS 0.47)
     Route: 065
  6. PREDNISOLONE. [Concomitant]
     Active Substance: PREDNISOLONE
     Indication: RENAL TRANSPLANT
     Dosage: 10 MG, QD
     Route: 065
  7. NEORAL [Suspect]
     Active Substance: CYCLOSPORINE
     Indication: IMMUNOSUPPRESSION
     Dosage: UNK MG/KG, UNK (3.50 PLUS OR MINUS 0.67 )
     Route: 065

REACTIONS (1)
  - Pulmonary tuberculosis [Recovered/Resolved]
